FAERS Safety Report 17072864 (Version 1)
Quarter: 2019Q4

REPORT INFORMATION
  Report Type: Spontaneous
  Country: NL (occurrence: NL)
  Receive Date: 20191125
  Receipt Date: 20191125
  Transmission Date: 20200122
  Serious: Yes (Death, Hospitalization)
  Sender: FDA-Public Use
  Company Number: NL-ALLERGAN-1948092US

PATIENT
  Sex: Male

DRUGS (6)
  1. OMEPRAZOL                          /00661201/ [Concomitant]
     Active Substance: OMEPRAZOLE
  2. BOTOX [Suspect]
     Active Substance: ONABOTULINUMTOXINA
     Indication: MUSCLE SPASTICITY
     Dosage: 200 UNITS, SINGLE
     Dates: start: 20191112, end: 20191112
  3. NIFEDIPINE. [Concomitant]
     Active Substance: NIFEDIPINE
  4. NADROPARINE [Concomitant]
     Active Substance: NADROPARIN
     Dosage: PROFYLACTISCH 2850EH
  5. LISINOPRIL. [Concomitant]
     Active Substance: LISINOPRIL
  6. MOVICOLON [Concomitant]
     Active Substance: POLYETHYLENE GLYCOL 3350\POTASSIUM CHLORIDE\SODIUM BICARBONATE\SODIUM CHLORIDE

REACTIONS (1)
  - Death [Fatal]

NARRATIVE: CASE EVENT DATE: 20191112
